FAERS Safety Report 5785867-7 (Version None)
Quarter: 2008Q2

REPORT INFORMATION
  Report Type: 
  Country: None (occurrence: None)
  Receive Date: 20080605
  Receipt Date: 20080313
  Transmission Date: 20081010
  Serious: No
  Sender: FDA-Public Use
  Company Number: A0711773A

PATIENT
  Age: 37 Year
  Sex: Female

DRUGS (2)
  1. ALLI [Suspect]
     Dates: start: 20080121
  2. PAIN MEDICATION [Concomitant]

REACTIONS (10)
  - ABDOMINAL DISTENSION [None]
  - ABDOMINAL PAIN UPPER [None]
  - CHOLELITHIASIS [None]
  - CONSTIPATION [None]
  - DIARRHOEA [None]
  - DRUG INEFFECTIVE [None]
  - FLATULENCE [None]
  - NAUSEA [None]
  - RECTAL DISCHARGE [None]
  - WEIGHT INCREASED [None]
